FAERS Safety Report 8960474 (Version 1)
Quarter: 2012Q4

REPORT INFORMATION
  Report Type: Spontaneous
  Country: US (occurrence: None)
  Receive Date: 20121211
  Receipt Date: 20121211
  Transmission Date: 20130627
  Serious: Yes (Death, Life-Threatening, Hospitalization)
  Sender: FDA-Public Use
  Company Number: None

PATIENT
  Age: 49 Year
  Sex: Male
  Weight: 77.3 kg

DRUGS (2)
  1. VIIBRYD [Suspect]
     Indication: DEPRESSION
  2. VIIBRYD [Suspect]
     Indication: SCHIZOPRENIA

REACTIONS (5)
  - Musculoskeletal stiffness [None]
  - Gait disturbance [None]
  - Renal disorder [None]
  - Cerebral haemorrhage [None]
  - Convulsion [None]
